FAERS Safety Report 5199488-0 (Version None)
Quarter: 2006Q4

REPORT INFORMATION
  Report Type: 
  Country: None (occurrence: None)
  Receive Date: 20061229
  Receipt Date: 20061122
  Transmission Date: 20070319
  Serious: Yes (Hospitalization)
  Sender: FDA-Public Use
  Company Number: 6018739

PATIENT
  Age: 67 Year
  Sex: Female

DRUGS (2)
  1. LODOZ (FILM-COATED TABLET) (HYDROCHLOROTHIAZIDE, BISOPROLOL FUMARATE) [Suspect]
     Indication: DRUG USE FOR UNKNOWN INDICATION
     Dosage: ORAL
     Route: 048
     Dates: end: 20051007
  2. ATACAND [Suspect]
     Indication: DRUG USE FOR UNKNOWN INDICATION
     Dosage: ORAL
     Route: 048
     Dates: end: 20051007

REACTIONS (3)
  - DYSPNOEA [None]
  - LUNG NEOPLASM [None]
  - MYASTHENIA GRAVIS [None]
